FAERS Safety Report 9167750 (Version 1)
Quarter: 2013Q1

REPORT INFORMATION
  Report Type: Spontaneous
  Country: US (occurrence: US)
  Receive Date: 20130318
  Receipt Date: 20130318
  Transmission Date: 20140127
  Serious: No
  Sender: FDA-Public Use
  Company Number: US-PFIZER INC-2013066728

PATIENT
  Age: 42 Year
  Sex: Female

DRUGS (2)
  1. NICOTROL INHALER [Suspect]
     Indication: SMOKING CESSATION THERAPY
     Dosage: 10 MG, SINGLE
     Dates: start: 20130205, end: 20130205
  2. NICOTROL INHALER [Suspect]
     Dosage: UNK

REACTIONS (1)
  - Drug ineffective [Unknown]
